FAERS Safety Report 17833898 (Version 9)
Quarter: 2021Q1

REPORT INFORMATION
  Report Type: Other
  Country: MX (occurrence: MX)
  Receive Date: 20200528
  Receipt Date: 20210216
  Transmission Date: 20210419
  Serious: Yes (Other)
  Sender: FDA-Public Use
  Company Number: MX-ROCHE-2357993

PATIENT
  Age: 69 Year
  Sex: Female
  Weight: 54 kg

DRUGS (6)
  1. RIVOTRIL [Suspect]
     Active Substance: CLONAZEPAM
     Indication: ANXIOLYTIC THERAPY
     Dosage: (STARTED 2 MONTHS AGO)
     Route: 048
  2. LUCENTIS [Suspect]
     Active Substance: RANIBIZUMAB
     Indication: MACULAR DEGENERATION
     Route: 031
     Dates: start: 2018
  3. LUCENTIS [Suspect]
     Active Substance: RANIBIZUMAB
     Dosage: FOR 3 MONTH (AROUND 2 YEARS AGO)
     Route: 031
  4. LUCENTIS [Suspect]
     Active Substance: RANIBIZUMAB
     Indication: EYE INFLAMMATION
     Dosage: EVERY 1 AND HALF MONTH, STARTED 1 AND HALF YEAR AGO
     Route: 031
  5. LUCENTIS [Suspect]
     Active Substance: RANIBIZUMAB
     Dosage: (10 MG/ML ONE APPLICATION IN EACH EYE)
     Route: 050
  6. LUCENTIS [Suspect]
     Active Substance: RANIBIZUMAB
     Dosage: (0.5/0.05 MG/ML)
     Route: 065

REACTIONS (41)
  - Eye haemorrhage [Recovered/Resolved with Sequelae]
  - Skeletal injury [Recovering/Resolving]
  - Off label use [Unknown]
  - Product dose omission issue [Unknown]
  - Lethargy [Not Recovered/Not Resolved]
  - Hypoaesthesia [Recovering/Resolving]
  - Crying [Recovering/Resolving]
  - Nervousness [Unknown]
  - Fatigue [Not Recovered/Not Resolved]
  - Inappropriate schedule of product administration [Unknown]
  - Hordeolum [Recovering/Resolving]
  - Infection [Not Recovered/Not Resolved]
  - Emotional disorder [Recovering/Resolving]
  - Discomfort [Not Recovered/Not Resolved]
  - Arthralgia [Not Recovered/Not Resolved]
  - Eye swelling [Recovering/Resolving]
  - Pain [Unknown]
  - Choroidal effusion [Recovered/Resolved with Sequelae]
  - Anxiety [Not Recovered/Not Resolved]
  - Vaginal haemorrhage [Recovered/Resolved]
  - Psychiatric symptom [Recovering/Resolving]
  - Acne [Recovered/Resolved]
  - Headache [Recovered/Resolved]
  - Joint injury [Recovering/Resolving]
  - Sleep disorder [Not Recovered/Not Resolved]
  - Product use in unapproved indication [Unknown]
  - Depression [Not Recovered/Not Resolved]
  - Ocular discomfort [Recovering/Resolving]
  - Nasopharyngitis [Unknown]
  - Vision blurred [Unknown]
  - Incorrect route of product administration [Unknown]
  - Obsessive thoughts [Unknown]
  - Bronchitis bacterial [Recovered/Resolved]
  - Injury [Recovering/Resolving]
  - Bipolar disorder [Unknown]
  - Stress [Recovering/Resolving]
  - Eye disorder [Recovered/Resolved]
  - Fall [Unknown]
  - Visual impairment [Not Recovered/Not Resolved]
  - Product availability issue [Unknown]
  - Palpitations [Unknown]

NARRATIVE: CASE EVENT DATE: 20190627
